FAERS Safety Report 24297828 (Version 2)
Quarter: 2024Q4

REPORT INFORMATION
  Report Type: Spontaneous
  Country: GB (occurrence: GB)
  Receive Date: 20240909
  Receipt Date: 20241021
  Transmission Date: 20250114
  Serious: Yes (Hospitalization, Disabling)
  Sender: CSL BEHRING
  Company Number: GB-BEH-2024176970

PATIENT
  Age: 14 Year
  Sex: Male
  Weight: 65 kg

DRUGS (11)
  1. PRIVIGEN [Suspect]
     Active Substance: HUMAN IMMUNOGLOBULIN G
     Indication: Autoimmune encephalopathy
     Dosage: 70 G, SINGLE (ONE DOSE)
     Route: 042
     Dates: start: 20240707
  2. PRIVIGEN [Suspect]
     Active Substance: HUMAN IMMUNOGLOBULIN G
     Indication: Off label use
     Dosage: 10 G
     Route: 042
     Dates: start: 20240714, end: 20240714
  3. PRIVIGEN [Suspect]
     Active Substance: HUMAN IMMUNOGLOBULIN G
     Dosage: 10 G
     Route: 042
     Dates: start: 20240714, end: 20240714
  4. PRIVIGEN [Suspect]
     Active Substance: HUMAN IMMUNOGLOBULIN G
     Dosage: 20 G
     Route: 042
     Dates: start: 20240714, end: 20240714
  5. ACYCLOVIR [Concomitant]
     Active Substance: ACYCLOVIR
  6. LEVETIRACETAM WOCKHARDT [Concomitant]
  7. MEROPENEM [Concomitant]
     Active Substance: MEROPENEM
  8. SODIUM CHLORIDE [Concomitant]
     Active Substance: SODIUM CHLORIDE
  9. SODIUM CHLORIDE [Concomitant]
     Active Substance: SODIUM CHLORIDE
  10. FENTANYL [Concomitant]
     Active Substance: FENTANYL
  11. PROPOFOL [Concomitant]
     Active Substance: PROPOFOL

REACTIONS (2)
  - Off label use [Unknown]
  - Bartonella test positive [Recovering/Resolving]

NARRATIVE: CASE EVENT DATE: 20240707
